FAERS Safety Report 21839325 (Version 2)
Quarter: 2023Q1

REPORT INFORMATION
  Report Type: Spontaneous
  Country: AU (occurrence: AU)
  Receive Date: 20230109
  Receipt Date: 20230116
  Transmission Date: 20230418
  Serious: Yes (Hospitalization)
  Sender: FDA-Public Use
  Company Number: AU-ALLERGAN-2300035US

PATIENT
  Sex: Female

DRUGS (3)
  1. BOTOX [Suspect]
     Active Substance: ONABOTULINUMTOXINA
     Indication: Dystonia
     Dosage: UNK UNK, SINGLE
     Dates: start: 2022, end: 2022
  2. CARBIDOPA\LEVODOPA [Suspect]
     Active Substance: CARBIDOPA\LEVODOPA
     Indication: Parkinson^s disease
     Dosage: UNK
     Dates: start: 20221107
  3. CARBIDOPA\LEVODOPA [Suspect]
     Active Substance: CARBIDOPA\LEVODOPA
     Dosage: CONTINUOUS RATE WAS INCREASED
     Dates: start: 202211

REACTIONS (10)
  - Fall [Recovered/Resolved]
  - Injury [Not Recovered/Not Resolved]
  - On and off phenomenon [Unknown]
  - Mobility decreased [Not Recovered/Not Resolved]
  - Dystonia [Unknown]
  - Hypotension [Unknown]
  - Hallucination [Unknown]
  - Flushing [Unknown]
  - Therapeutic product effect decreased [Unknown]
  - Nausea [Unknown]

NARRATIVE: CASE EVENT DATE: 20220101
